FAERS Safety Report 7311264-9 (Version None)
Quarter: 2011Q1

REPORT INFORMATION
  Report Type: 
  Country: None (occurrence: None)
  Receive Date: 20110119
  Receipt Date: 20101118
  Transmission Date: 20110831
  Serious: Yes (Hospitalization)
  Sender: FDA-Public Use
  Company Number: A-NJ2010-41496

PATIENT
  Age: 47 Year
  Sex: Female

DRUGS (4)
  1. REVATIO [Concomitant]
  2. CALCIUM CHANNEL BLOCKERS [Concomitant]
  3. VENTAVIS [Suspect]
     Indication: PULMONARY ARTERIAL HYPERTENSION
     Dosage: RESPIRATORY
     Route: 055
     Dates: start: 20100503, end: 20100901
  4. TRACLEER [Suspect]
     Indication: PULMONARY ARTERIAL HYPERTENSION
     Dosage: ORAL
     Route: 048
     Dates: start: 20100127

REACTIONS (2)
  - HAEMOGLOBIN DECREASED [None]
  - MALAISE [None]
